FAERS Safety Report 8833015 (Version 1)
Quarter: 2012Q4

REPORT INFORMATION
  Report Type: 
  Country: US (occurrence: US)
  Receive Date: 20121010
  Receipt Date: 20121010
  Transmission Date: 20130627
  Serious: Yes (Death, Hospitalization)
  Sender: FDA-Public Use
  Company Number: US-ACTELION-A-NJ2012-70580

PATIENT
  Age: 66 Year
  Sex: Female

DRUGS (2)
  1. VELETRI [Suspect]
     Indication: PULMONARY ARTERIAL HYPERTENSION
     Dosage: 34 ng/kg, per min
     Route: 041
     Dates: start: 20100920
  2. ASPIRIN [Concomitant]

REACTIONS (3)
  - Death [Fatal]
  - Malaise [Unknown]
  - Asthenia [Unknown]
